FAERS Safety Report 22132764 (Version 1)
Quarter: 2023Q1

REPORT INFORMATION
  Report Type: Spontaneous
  Country: US (occurrence: US)
  Receive Date: 20230323
  Receipt Date: 20230323
  Transmission Date: 20230417
  Serious: No
  Sender: FDA-Public Use
  Company Number: US-ALLERGAN-2240481US

PATIENT
  Age: 74 Year
  Sex: Female
  Weight: 81.646 kg

DRUGS (1)
  1. LINZESS [Suspect]
     Active Substance: LINACLOTIDE
     Indication: Constipation
     Dosage: 290 ?G, QD
     Route: 048
     Dates: start: 202209

REACTIONS (4)
  - Hair colour changes [Not Recovered/Not Resolved]
  - Inflammation [Recovering/Resolving]
  - Anal incontinence [Unknown]
  - Defaecation urgency [Unknown]

NARRATIVE: CASE EVENT DATE: 20221001
